FAERS Safety Report 25610430 (Version 3)
Quarter: 2025Q3

REPORT INFORMATION
  Report Type: Report from Study
  Country: US (occurrence: US)
  Receive Date: 20250728
  Receipt Date: 20250908
  Transmission Date: 20251020
  Serious: Yes (Other)
  Sender: TAKEDA
  Company Number: US-TAKEDA-2024TUS130117

PATIENT
  Sex: Female

DRUGS (24)
  1. MARIBAVIR [Suspect]
     Active Substance: MARIBAVIR
     Indication: Cytomegalovirus infection
     Dosage: 400 MILLIGRAM, BID
     Dates: start: 20241120, end: 20250303
  2. MARIBAVIR [Suspect]
     Active Substance: MARIBAVIR
     Dosage: 400 MILLIGRAM, BID
     Dates: end: 20250716
  3. MARIBAVIR [Suspect]
     Active Substance: MARIBAVIR
     Dosage: 400 MILLIGRAM, QD
  4. MARIBAVIR [Suspect]
     Active Substance: MARIBAVIR
     Dosage: 400 MILLIGRAM, BID
  5. MARIBAVIR [Suspect]
     Active Substance: MARIBAVIR
     Dosage: 400 MILLIGRAM, BID
     Dates: start: 20250822
  6. ACCUNEB [Concomitant]
     Active Substance: ALBUTEROL SULFATE
     Indication: Wheezing
  7. VENTOLIN HFA [Concomitant]
     Active Substance: ALBUTEROL SULFATE
     Indication: Wheezing
  8. PERIACTIN [Concomitant]
     Active Substance: CYPROHEPTADINE HYDROCHLORIDE
     Dosage: 4 MILLIGRAM, BID
  9. LOZOL [Concomitant]
     Active Substance: INDAPAMIDE
     Dosage: 2.5 MILLIGRAM, QD
  10. NOVOLOG [Concomitant]
     Active Substance: INSULIN ASPART
  11. LANTUS SOLOSTAR [Concomitant]
     Active Substance: INSULIN GLARGINE
  12. ROBAXIN [Concomitant]
     Active Substance: METHOCARBAMOL
     Dosage: 500 MILLIGRAM, BID
  13. LOPRESSOR [Concomitant]
     Active Substance: METOPROLOL TARTRATE
     Dosage: 100 MILLIGRAM, BID
  14. MYFORTIC [Concomitant]
     Active Substance: MYCOPHENOLATE SODIUM
     Dosage: 360 MILLIGRAM, BID
  15. PROCARDIA [Concomitant]
     Active Substance: NIFEDIPINE
     Dosage: 60 MILLIGRAM, QD
  16. ONDANSETRON [Concomitant]
     Active Substance: ONDANSETRON
     Dosage: 4 MILLIGRAM, TID
  17. PROTONIX [Concomitant]
     Active Substance: PANTOPRAZOLE SODIUM
     Indication: Dyspepsia
     Dosage: 40 MILLIGRAM, BID
  18. DELTASONE [Concomitant]
     Active Substance: PREDNISONE
     Dosage: 5 MILLIGRAM, QD
  19. CARAFATE [Concomitant]
     Active Substance: SUCRALFATE
     Dosage: 1 GRAM, BID
  20. PROGRAF [Concomitant]
     Active Substance: TACROLIMUS
     Dosage: 3 MILLIGRAM, BID
  21. SPIRIVA RESPIMAT [Concomitant]
     Active Substance: TIOTROPIUM BROMIDE
     Dosage: UNK UNK, QD
  22. SULFAMETHOXAZOLE\TRIMETHOPRIM [Concomitant]
     Active Substance: SULFAMETHOXAZOLE\TRIMETHOPRIM
     Dosage: 400 MILLIGRAM, QD
  23. DAPSONE [Concomitant]
     Active Substance: DAPSONE
     Dosage: 100 MILLIGRAM, QD
  24. VALGANCICLOVIR [Concomitant]
     Active Substance: VALGANCICLOVIR
     Dosage: 900 MILLIGRAM, BID
     Dates: end: 20240925

REACTIONS (8)
  - Cytomegalovirus infection reactivation [Unknown]
  - Diabetes mellitus inadequate control [Unknown]
  - Peripheral swelling [Unknown]
  - Oedema [Recovering/Resolving]
  - Back pain [Unknown]
  - Muscle spasms [Unknown]
  - Decreased appetite [Unknown]
  - Nausea [Unknown]
